FAERS Safety Report 16377202 (Version 1)
Quarter: 2019Q3

REPORT INFORMATION
  Report Type: Spontaneous
  Country: US (occurrence: US)
  Receive Date: 20190530
  Receipt Date: 20190530
  Transmission Date: 20191004
  Serious: Yes (Other)
  Sender: FDA-Public Use
  Company Number: None

PATIENT
  Age: 59 Year
  Sex: Female
  Weight: 61.1 kg

DRUGS (1)
  1. FULPHILA [Suspect]
     Active Substance: PEGFILGRASTIM-JMDB
     Indication: NEUTROPENIA
     Dosage: ?          OTHER FREQUENCY:EVERY 21 DAY CYCLE;?
     Route: 058
     Dates: start: 20190213, end: 20190213

REACTIONS (2)
  - Flushing [None]
  - Palpitations [None]

NARRATIVE: CASE EVENT DATE: 20190213
